FAERS Safety Report 12116648 (Version 2)
Quarter: 2016Q1

REPORT INFORMATION
  Report Type: Spontaneous
  Country: CA (occurrence: CA)
  Receive Date: 20160225
  Receipt Date: 20160304
  Transmission Date: 20160526
  Serious: Yes (Life-Threatening)
  Sender: FDA-Public Use
  Company Number: CA-BAXTER-2016BAX008946

PATIENT
  Age: 65 Year
  Sex: Female
  Weight: 68 kg

DRUGS (5)
  1. PACLITAXEL. [Suspect]
     Active Substance: PACLITAXEL
     Indication: OVARIAN CANCER
     Route: 042
     Dates: start: 20151124
  2. 0.9% SODIUM CHLORIDE INJECTION [Suspect]
     Active Substance: SODIUM CHLORIDE
     Indication: MEDICATION DILUTION
     Route: 042
     Dates: start: 20160219, end: 20160219
  3. PACLITAXEL. [Suspect]
     Active Substance: PACLITAXEL
     Dosage: FIFTH CYCLE
     Route: 042
     Dates: start: 20160219
  4. PACLITAXEL. [Suspect]
     Active Substance: PACLITAXEL
     Route: 042
     Dates: end: 20160223
  5. MAGNESIUM SULPHATE [Suspect]
     Active Substance: MAGNESIUM SULFATE
     Indication: MINERAL SUPPLEMENTATION
     Route: 042
     Dates: start: 20160219, end: 20160219

REACTIONS (1)
  - Anaphylactic reaction [Unknown]

NARRATIVE: CASE EVENT DATE: 20160219
